FAERS Safety Report 7508866-3 (Version None)
Quarter: 2011Q2

REPORT INFORMATION
  Report Type: 
  Country: None (occurrence: None)
  Receive Date: 20110527
  Receipt Date: 20110513
  Transmission Date: 20111010
  Serious: Yes (Hospitalization)
  Sender: FDA-Public Use
  Company Number: PHHY2011KR29049

PATIENT
  Sex: Female

DRUGS (1)
  1. SANDOSTATIN LAR [Suspect]
     Indication: ACROMEGALY
     Dosage: 30 MG, UNK
     Route: 030
     Dates: start: 20090305

REACTIONS (5)
  - HIP FRACTURE [None]
  - MOVEMENT DISORDER [None]
  - OEDEMA [None]
  - GAIT DISTURBANCE [None]
  - FALL [None]
